FAERS Safety Report 25034842 (Version 1)
Quarter: 2025Q1

REPORT INFORMATION
  Report Type: Spontaneous
  Country: GB (occurrence: GB)
  Receive Date: 20250304
  Receipt Date: 20250304
  Transmission Date: 20250409
  Serious: Yes (Other)
  Sender: ASPIRO PHARMA
  Company Number: None

PATIENT
  Sex: Female

DRUGS (1)
  1. FOSAPREPITANT [Suspect]
     Active Substance: FOSAPREPITANT
     Indication: Product used for unknown indication
     Route: 065

REACTIONS (6)
  - Syncope [Unknown]
  - Swelling of eyelid [Unknown]
  - Swelling face [Unknown]
  - Nausea [Recovered/Resolved]
  - Flushing [Unknown]
  - Headache [Unknown]
